FAERS Safety Report 12117537 (Version 1)
Quarter: 2016Q1

REPORT INFORMATION
  Report Type: Spontaneous
  Country: US (occurrence: US)
  Receive Date: 20160226
  Receipt Date: 20160226
  Transmission Date: 20160526
  Serious: Yes (Hospitalization)
  Sender: FDA-Public Use
  Company Number: PHEH2016US004421

PATIENT
  Age: 36 Year
  Sex: Female

DRUGS (1)
  1. GILENYA [Suspect]
     Active Substance: FINGOLIMOD HYDROCHLORIDE
     Indication: PRODUCT USED FOR UNKNOWN INDICATION
     Route: 065

REACTIONS (9)
  - Muscle spasms [Unknown]
  - Multiple sclerosis relapse [Recovered/Resolved]
  - Asthenia [Unknown]
  - Back pain [Unknown]
  - Central nervous system lesion [Unknown]
  - Muscular weakness [Unknown]
  - Fatigue [Unknown]
  - Drug ineffective [Unknown]
  - Muscle tightness [Unknown]

NARRATIVE: CASE EVENT DATE: 20151116
